FAERS Safety Report 15788933 (Version 1)
Quarter: 2019Q1

REPORT INFORMATION
  Report Type: Report from Study
  Country: None (occurrence: US)
  Receive Date: 20190104
  Receipt Date: 20190104
  Transmission Date: 20190417
  Serious: Yes (Other)
  Sender: FDA-Public Use
  Company Number: US-INGENUS PHARMACEUTICALS, LLC-INF201812-001209

PATIENT
  Age: 52 Month
  Sex: Male

DRUGS (5)
  1. MELPHALAN. [Suspect]
     Active Substance: MELPHALAN
     Indication: RETINOBLASTOMA
  2. HEPARIN [Concomitant]
     Active Substance: HEPARIN SODIUM
  3. CARBOPLATIN. [Suspect]
     Active Substance: CARBOPLATIN
     Indication: RETINOBLASTOMA
  4. NITROUS OXIDE. [Suspect]
     Active Substance: NITROUS OXIDE
     Indication: RETINOBLASTOMA
     Dosage: 24 MIN OF NITROUS OXIDE INDUCTION ANESTHESIA WITH A MAXIMUM END TIDAL NITROUS OXIDE (ET N2O) OF 60.2
  5. TOPOTECAN [Suspect]
     Active Substance: TOPOTECAN HYDROCHLORIDE
     Indication: RETINOBLASTOMA

REACTIONS (2)
  - Vasospasm [Unknown]
  - Choroidal infarction [Unknown]
